FAERS Safety Report 5581908-0 (Version None)
Quarter: 2008Q1

REPORT INFORMATION
  Report Type: 
  Country: None (occurrence: None)
  Receive Date: 20080104
  Receipt Date: 20071231
  Transmission Date: 20080703
  Serious: Yes (Hospitalization)
  Sender: FDA-Public Use
  Company Number: GB-PFIZER INC-2008000682

PATIENT
  Sex: Male

DRUGS (1)
  1. DOXAZOSIN [Suspect]
     Indication: BENIGN PROSTATIC HYPERPLASIA
     Route: 048

REACTIONS (3)
  - FLOPPY IRIS SYNDROME [None]
  - IRIDOCELE [None]
  - MIOSIS [None]
